FAERS Safety Report 6928768-0 (Version None)
Quarter: 2010Q3

REPORT INFORMATION
  Report Type: 
  Country: None (occurrence: None)
  Receive Date: 20100817
  Receipt Date: 20100805
  Transmission Date: 20110219
  Serious: Yes (Hospitalization, Other)
  Sender: FDA-Public Use
  Company Number: JP-PFIZER INC-2010035762

PATIENT
  Age: 63 Year
  Sex: Female

DRUGS (6)
  1. AZULFIDINE [Suspect]
     Indication: MUSCULOSKELETAL PAIN
     Dosage: 1 TABLET DAILY
     Route: 048
  2. ALLEGRA [Concomitant]
     Dosage: 2 TABLETS DAILY
     Route: 048
  3. ASPIRIN [Concomitant]
     Dosage: 1 TABLET DAILY
     Route: 048
  4. OMEPRAL [Concomitant]
     Indication: GASTRIC ULCER
     Dosage: 1 TABLET DAILY
     Route: 048
  5. ALENDRONATE SODIUM [Concomitant]
     Indication: OSTEOPOROSIS
     Dosage: 1 TABLET DAILY
     Route: 048
  6. FLUVASTATIN [Concomitant]
     Indication: HYPERLIPIDAEMIA
     Dosage: 1 TABLET DAILY
     Route: 048

REACTIONS (1)
  - ANAEMIA HAEMOLYTIC AUTOIMMUNE [None]
